FAERS Safety Report 17094965 (Version 1)
Quarter: 2019Q4

REPORT INFORMATION
  Report Type: Spontaneous
  Country: US (occurrence: US)
  Receive Date: 20191104
  Receipt Date: 20191104
  Transmission Date: 20200122
  Serious: Yes (Other)
  Sender: FDA-Public Use
  Company Number: None

PATIENT
  Age: 71 Year
  Sex: Female

DRUGS (6)
  1. NETOPROLOL [Concomitant]
  2. SOD SULF [Concomitant]
  3. METRONIDAZOLE. [Concomitant]
     Active Substance: METRONIDAZOLE
  4. CYCLOBENZAPRINE. [Concomitant]
     Active Substance: CYCLOBENZAPRINE
  5. PROMISEB [Concomitant]
     Active Substance: DEVICE
  6. ALECENSA [Suspect]
     Active Substance: ALECTINIB HYDROCHLORIDE
     Indication: LUNG NEOPLASM MALIGNANT
     Route: 048
     Dates: start: 20190516

REACTIONS (12)
  - Skin cancer [None]
  - Swelling [None]
  - Nausea [None]
  - Fatigue [None]
  - Constipation [None]
  - Fluid retention [None]
  - Dry skin [None]
  - Alopecia [None]
  - Dyspnoea [None]
  - Vomiting [None]
  - Hypersomnia [None]
  - Neuropathy peripheral [None]
